FAERS Safety Report 21311139 (Version 1)
Quarter: 2022Q3

REPORT INFORMATION
  Report Type: Spontaneous
  Country: US (occurrence: None)
  Receive Date: 20220909
  Receipt Date: 20220909
  Transmission Date: 20221027
  Serious: No
  Sender: FDA-Public Use
  Company Number: US-ARIS GLOBAL-202201-0113

PATIENT
  Sex: Female
  Weight: 20.5 kg

DRUGS (8)
  1. OXERVATE [Suspect]
     Active Substance: CENEGERMIN-BKBJ
     Indication: Corneal perforation
     Route: 047
     Dates: start: 20220115
  2. DEXAMETHASONE [Concomitant]
     Active Substance: DEXAMETHASONE
  3. MOXIFLOXACIN [Concomitant]
     Active Substance: MOXIFLOXACIN
  4. ERYTHROMYCIN [Concomitant]
     Active Substance: ERYTHROMYCIN
  5. MELATONIN [Concomitant]
     Active Substance: MELATONIN
  6. CYCLOPENTOLATE HYDROCHLORIDE [Concomitant]
     Active Substance: CYCLOPENTOLATE HYDROCHLORIDE
  7. TOBRAMYCIN [Concomitant]
     Active Substance: TOBRAMYCIN
  8. CLONIDINE HYDROCHLORIDE [Concomitant]
     Active Substance: CLONIDINE HYDROCHLORIDE

REACTIONS (2)
  - Accidental overdose [Unknown]
  - Device use issue [Unknown]
